FAERS Safety Report 8344297-4 (Version None)
Quarter: 2012Q2

REPORT INFORMATION
  Report Type: 
  Country: None (occurrence: None)
  Receive Date: 20120508
  Receipt Date: 20081230
  Transmission Date: 20120825
  Serious: Yes (Other)
  Sender: FDA-Public Use
  Company Number: US-TEVA-US024893

PATIENT
  Age: 65 Year
  Sex: Female

DRUGS (3)
  1. RITUXAN [Concomitant]
     Indication: CHRONIC LYMPHOCYTIC LEUKAEMIA
  2. TREANDA [Suspect]
     Dosage: 173 MILLIGRAM; 150 MG/METER SQUARE
     Route: 042
     Dates: start: 20081007, end: 20081007
  3. TREANDA [Suspect]
     Indication: CHRONIC LYMPHOCYTIC LEUKAEMIA
     Dosage: 173 MILLIGRAM; 150 MG/METER SQUARE
     Route: 042
     Dates: start: 20080815, end: 20080815

REACTIONS (5)
  - PYREXIA [None]
  - RASH [None]
  - CHILLS [None]
  - TREMOR [None]
  - RASH PRURITIC [None]
